FAERS Safety Report 13840288 (Version 1)
Quarter: 2017Q3

REPORT INFORMATION
  Report Type: Spontaneous
  Country: DE (occurrence: DE)
  Receive Date: 20170807
  Receipt Date: 20170807
  Transmission Date: 20171127
  Serious: Yes (Other)
  Sender: FDA-Public Use
  Company Number: DE-TEVA-787662GER

PATIENT
  Age: 57 Year
  Sex: Male
  Weight: 66 kg

DRUGS (2)
  1. CISPLATIN TEVA 1 MG/ML KONZENTRAT ZUR HERSTELLUNG EINER INFUSIONSLOESU [Suspect]
     Active Substance: CISPLATIN
     Indication: HEAD AND NECK CANCER
     Dosage: 30 MG/M2 DAILY;
     Route: 042
     Dates: start: 20170706, end: 20170706
  2. CISPLATIN TEVA 1 MG/ML KONZENTRAT ZUR HERSTELLUNG EINER INFUSIONSLOESU [Suspect]
     Active Substance: CISPLATIN
     Route: 042
     Dates: start: 201706, end: 201706

REACTIONS (2)
  - Drug eruption [Recovered/Resolved]
  - Hypersensitivity [None]

NARRATIVE: CASE EVENT DATE: 20170706
